FAERS Safety Report 5092652-0 (Version None)
Quarter: 2006Q3

REPORT INFORMATION
  Report Type: 
  Country: None (occurrence: None)
  Receive Date: 20060828
  Receipt Date: 20060815
  Transmission Date: 20061208
  Serious: Yes (Other)
  Sender: FDA-Public Use
  Company Number: 2006066943

PATIENT
  Age: 55 Year
  Sex: Male
  Weight: 86.1834 kg

DRUGS (5)
  1. BEXTRA [Suspect]
     Indication: JOINT INJURY
     Dosage: UNKNOWN (1-2 TIMES A DAY); UNKNOWN
     Dates: start: 20010201
  2. VIOXX [Concomitant]
  3. LORCET PLUS (HYDROCODONE BITARTRATE, PARACETAMOL) [Concomitant]
  4. LIPITOR [Concomitant]
  5. LEXAPRO (ESCITALOPRAM) [Concomitant]

REACTIONS (8)
  - BLOOD CHOLESTEROL INCREASED [None]
  - CEREBROVASCULAR ACCIDENT [None]
  - CHEST PAIN [None]
  - DEPRESSION [None]
  - DYSPNOEA [None]
  - EMOTIONAL DISORDER [None]
  - MYOCARDIAL INFARCTION [None]
  - TRANSIENT ISCHAEMIC ATTACK [None]
